FAERS Safety Report 4466164-9 (Version None)
Quarter: 2004Q3

REPORT INFORMATION
  Report Type: 
  Country: None (occurrence: None)
  Receive Date: 20040930
  Receipt Date: 20040917
  Transmission Date: 20050211
  Serious: Yes (Other)
  Sender: FDA-Public Use
  Company Number: 2004067676

PATIENT
  Age: 52 Year
  Sex: Female

DRUGS (5)
  1. ATORVASTATIN CALCIUM [Suspect]
     Indication: ILL-DEFINED DISORDER
     Dosage: 10 MG
     Dates: start: 20040601, end: 20040907
  2. KETOPROFEN [Concomitant]
  3. PROPOFAN (DEXTROPROPOXYPHENE, PARACETAMOL) [Concomitant]
  4. CELIPROLOL (CELIPROLOL) [Concomitant]
  5. SPIRONOLACTONE [Concomitant]

REACTIONS (1)
  - JOINT LIGAMENT RUPTURE [None]
